FAERS Safety Report 9962285 (Version 1)
Quarter: 2014Q1

REPORT INFORMATION
  Report Type: Report from Study
  Country: US (occurrence: US)
  Receive Date: 20140305
  Receipt Date: 20140305
  Transmission Date: 20141002
  Serious: No
  Sender: FDA-Public Use
  Company Number: US-ABBVIE-13P-163-1116228-00

PATIENT
  Age: 75 Year
  Sex: Female

DRUGS (13)
  1. HUMIRA [Suspect]
     Indication: COLITIS ULCERATIVE
     Dates: start: 20130523
  2. PROBIOTIC [Concomitant]
     Indication: PRODUCT USED FOR UNKNOWN INDICATION
     Dosage: DAILY
  3. LIBRAX [Concomitant]
     Indication: PRODUCT USED FOR UNKNOWN INDICATION
     Dosage: DAILY
  4. ASACOL [Concomitant]
     Indication: PRODUCT USED FOR UNKNOWN INDICATION
     Dosage: (2) 800MG
  5. PROZAC [Concomitant]
     Indication: COLITIS ULCERATIVE
  6. OXYBUTYNIN [Concomitant]
     Indication: HYPERTONIC BLADDER
  7. UROXATRAL [Concomitant]
     Indication: URINARY RETENTION
  8. SINGULAIR [Concomitant]
     Indication: ASTHMA
     Dosage: AT BEDTIME
  9. Q VAR INHALER [Concomitant]
     Indication: ASTHMA
     Dosage: AT BEDTIME
  10. ZOCOR [Concomitant]
     Indication: BLOOD CHOLESTEROL INCREASED
     Dosage: AT BEDTIME
  11. VITAMIN B-12 [Concomitant]
     Indication: PRODUCT USED FOR UNKNOWN INDICATION
  12. ALLEGRA [Concomitant]
     Indication: HYPERSENSITIVITY
  13. FIORICET [Concomitant]
     Indication: PAIN

REACTIONS (3)
  - Oropharyngeal pain [Recovering/Resolving]
  - Diarrhoea [Recovering/Resolving]
  - Haematochezia [Unknown]
